FAERS Safety Report 9324290 (Version 1)
Quarter: 2013Q2

REPORT INFORMATION
  Report Type: Report from Study
  Country: AR (occurrence: AR)
  Receive Date: 20130603
  Receipt Date: 20130603
  Transmission Date: 20140414
  Serious: Yes (Hospitalization)
  Sender: FDA-Public Use
  Company Number: PHHY2013AR055439

PATIENT
  Sex: Female

DRUGS (2)
  1. EXFORGE [Suspect]
     Indication: HYPERTENSION
     Dosage: 0.5 DF (VALS 160 MG/ AMLO 5 MG) DAILY
     Route: 048
  2. EXFORGE [Suspect]
     Dosage: UNK UKN, UNK
     Dates: start: 201102

REACTIONS (3)
  - Ear injury [Recovered/Resolved]
  - Head injury [Recovered/Resolved]
  - Incorrect dose administered [Unknown]
